FAERS Safety Report 14608206 (Version 2)
Quarter: 2018Q2

REPORT INFORMATION
  Report Type: Report from Study
  Country: US (occurrence: US)
  Receive Date: 20180307
  Receipt Date: 20180619
  Transmission Date: 20180711
  Serious: Yes (Hospitalization, Other)
  Sender: FDA-Public Use
  Company Number: US-GILEAD-2018-0324842

PATIENT
  Age: 75 Year
  Sex: Female

DRUGS (15)
  1. AMBRISENTAN [Suspect]
     Active Substance: AMBRISENTAN
     Indication: SYSTEMIC SCLERODERMA
     Dosage: 10 MG, QD
     Route: 065
     Dates: start: 20160420
  2. SINGULAIR [Concomitant]
     Active Substance: MONTELUKAST SODIUM
  3. LANSOPRAZOLE. [Concomitant]
     Active Substance: LANSOPRAZOLE
  4. RHINOCORT                          /00212602/ [Concomitant]
     Active Substance: BECLOMETHASONE DIPROPIONATE
  5. TRIAMCINOLON                       /00031901/ [Concomitant]
  6. CALCIUM + D3                       /00944201/ [Concomitant]
     Active Substance: CALCIUM CARBONATE\CHOLECALCIFEROL
  7. VAGIFEM [Concomitant]
     Active Substance: ESTRADIOL
  8. METHOCARBAMOL. [Concomitant]
     Active Substance: METHOCARBAMOL
  9. ASPIRIN                            /00002701/ [Concomitant]
     Active Substance: ASPIRIN
  10. TORSEMIDE. [Concomitant]
     Active Substance: TORSEMIDE
  11. FERROUS SULFATE. [Concomitant]
     Active Substance: FERROUS SULFATE
  12. ADCIRCA [Suspect]
     Active Substance: TADALAFIL
     Indication: SYSTEMIC SCLERODERMA
     Dosage: 20 MG, UNK
     Route: 065
  13. TURMERIC                           /01079602/ [Concomitant]
     Active Substance: HERBALS\TURMERIC
  14. CENTRUM SILVER                     /02363801/ [Concomitant]
     Active Substance: MINERALS\VITAMINS
  15. PLAQUENIL                          /00072602/ [Concomitant]
     Active Substance: HYDROXYCHLOROQUINE DIPHOSPHATE

REACTIONS (5)
  - Oedema [Not Recovered/Not Resolved]
  - Oedema [Recovered/Resolved]
  - Off label use [Not Recovered/Not Resolved]
  - Bladder cancer [Not Recovered/Not Resolved]
  - Weight increased [Recovered/Resolved]

NARRATIVE: CASE EVENT DATE: 20160420
